FAERS Safety Report 4720233-4 (Version None)
Quarter: 2005Q3

REPORT INFORMATION
  Report Type: 
  Country: None (occurrence: None)
  Receive Date: 20050721
  Receipt Date: 20050714
  Transmission Date: 20060218
  Serious: Yes (Death)
  Sender: FDA-Public Use
  Company Number: US-JNJFOC-20050702877

PATIENT
  Age: 51 Year
  Sex: Female
  Weight: 77.11 kg

DRUGS (2)
  1. LEUSTATIN [Suspect]
     Route: 042
  2. LEUSTATIN [Suspect]
     Dosage: FIRST DOSE IN SUMMER OF 1991 OR 1992 - 7 DAY INTRAVENOUS INFUSION
     Route: 042

REACTIONS (3)
  - EPSTEIN-BARR VIRUS INFECTION [None]
  - PYREXIA [None]
  - SEPTIC SHOCK [None]
